FAERS Safety Report 4810860-8 (Version None)
Quarter: 2005Q4

REPORT INFORMATION
  Report Type: 
  Country: None (occurrence: None)
  Receive Date: 20051027
  Receipt Date: 20050323
  Transmission Date: 20060501
  Serious: No
  Sender: FDA-Public Use
  Company Number: US-GLAXOSMITHKLINE-A0551027A

PATIENT
  Age: 53 Year
  Sex: Male
  Weight: 30.2 kg

DRUGS (5)
  1. LEXIVA [Suspect]
     Indication: HIV INFECTION
     Dosage: 1400MG TWICE PER DAY
     Route: 048
     Dates: start: 20050315, end: 20050322
  2. EPIVIR [Concomitant]
  3. TENOFOVIR [Concomitant]
  4. IMODIUM [Concomitant]
  5. LORATADINE [Concomitant]

REACTIONS (3)
  - DYSARTHRIA [None]
  - HYPOAESTHESIA ORAL [None]
  - PARAESTHESIA ORAL [None]
